FAERS Safety Report 9369034 (Version 1)
Quarter: 2013Q2

REPORT INFORMATION
  Report Type: Spontaneous
  Country: FR (occurrence: None)
  Receive Date: 20130621
  Receipt Date: 20130621
  Transmission Date: 20140414
  Serious: Yes (Hospitalization)
  Sender: FDA-Public Use
  Company Number: SYM-2013-04850

PATIENT
  Age: 87 Year
  Sex: Female

DRUGS (8)
  1. FLAGYL [Suspect]
     Indication: DERMO-HYPODERMITIS
     Route: 048
     Dates: start: 20121009, end: 20121015
  2. CEFTRIAXONE PANPHARMA [Suspect]
     Indication: DERMO-HYPODERMITIS
     Route: 042
     Dates: start: 20121009, end: 20121015
  3. DALACIN [Suspect]
     Indication: INFECTION
     Route: 048
     Dates: start: 20121003, end: 20121009
  4. PENICILLIN G [Suspect]
     Indication: INFECTION
     Route: 048
     Dates: start: 20120927, end: 20121003
  5. BIOGARAN [Concomitant]
  6. TAVANIC [Concomitant]
  7. INVANZ [Concomitant]
  8. FUNGIZONE [Concomitant]

REACTIONS (4)
  - Rash morbilliform [None]
  - Pyrexia [None]
  - Diarrhoea [None]
  - Toxic skin eruption [None]
